FAERS Safety Report 11199641 (Version 1)
Quarter: 2015Q2

REPORT INFORMATION
  Report Type: Spontaneous
  Country: US (occurrence: US)
  Receive Date: 20150618
  Receipt Date: 20150618
  Transmission Date: 20150821
  Serious: Yes (Other)
  Sender: FDA-Public Use
  Company Number: US-BRISTOL-MYERS SQUIBB COMPANY-BMS-2015-037885

PATIENT
  Sex: Female
  Weight: 84 kg

DRUGS (2)
  1. ABILIFY [Suspect]
     Active Substance: ARIPIPRAZOLE
     Indication: DYSTHYMIC DISORDER
     Dosage: 2 MG, QD
     Route: 048
     Dates: start: 20150421
  2. VENLAFAXINE [Concomitant]
     Active Substance: VENLAFAXINE HYDROCHLORIDE
     Indication: PRODUCT USED FOR UNKNOWN INDICATION
     Route: 065

REACTIONS (6)
  - Feeling abnormal [Unknown]
  - Social avoidant behaviour [Unknown]
  - Foot operation [Unknown]
  - Pain [Unknown]
  - Off label use [Unknown]
  - Somnolence [Unknown]
